FAERS Safety Report 9171743 (Version 4)
Quarter: 2013Q2

REPORT INFORMATION
  Report Type: Spontaneous
  Country: GB (occurrence: None)
  Receive Date: 20130318
  Receipt Date: 20130402
  Transmission Date: 20140414
  Serious: Yes (Death, Congenital Anomaly, Other)
  Sender: FDA-Public Use
  Company Number: AUR-APL-2013-02226

PATIENT
  Sex: 0

DRUGS (2)
  1. RISPERIDONE (RISPERIDONE) [Suspect]
     Indication: SCHIZOPHRENIA
     Route: 064
  2. XEPLION [Suspect]
     Indication: SCHIZOPHRENIA
     Dosage: 50 MG 1 IN 1 WK
     Route: 064
     Dates: start: 20120622, end: 20121114

REACTIONS (3)
  - Foetal exposure during pregnancy [None]
  - Abortion induced [None]
  - Congenital anomaly [None]
